FAERS Safety Report 9027011 (Version 4)
Quarter: 2013Q2

REPORT INFORMATION
  Report Type: Spontaneous
  Country: US (occurrence: US)
  Receive Date: 20130123
  Receipt Date: 20130422
  Transmission Date: 20140414
  Serious: Yes (Congenital Anomaly, Other)
  Sender: FDA-Public Use
  Company Number: US-JNJFOC-20121111344

PATIENT
  Age: 0 Year
  Sex: Male

DRUGS (5)
  1. TOPAMAX [Suspect]
     Indication: FOETAL EXPOSURE DURING PREGNANCY
     Dosage: 100 MG AND 200 MG
     Route: 064
     Dates: start: 20070703, end: 20080912
  2. WELLBUTRIN XL [Suspect]
     Indication: FOETAL EXPOSURE DURING PREGNANCY
     Route: 064
  3. LAMOTRIGINE [Suspect]
     Indication: FOETAL EXPOSURE DURING PREGNANCY
     Route: 064
  4. TRAZODONE [Suspect]
     Indication: FOETAL EXPOSURE DURING PREGNANCY
     Route: 064
  5. KLONOPIN [Suspect]
     Indication: FOETAL EXPOSURE DURING PREGNANCY
     Route: 064

REACTIONS (6)
  - Premature baby [Not Recovered/Not Resolved]
  - Congenital choroid plexus cyst [Unknown]
  - Foetal growth restriction [Unknown]
  - Attention deficit/hyperactivity disorder [Unknown]
  - Cleft lip [Unknown]
  - Foetal distress syndrome [Unknown]
